FAERS Safety Report 23060966 (Version 2)
Quarter: 2023Q4

REPORT INFORMATION
  Report Type: Spontaneous
  Country: GR (occurrence: GR)
  Receive Date: 20231013
  Receipt Date: 20231218
  Transmission Date: 20240110
  Serious: Yes (Other)
  Sender: FDA-Public Use
  Company Number: GR-JNJFOC-20231003695

PATIENT
  Age: 63 Year
  Sex: Female

DRUGS (3)
  1. STELARA [Suspect]
     Active Substance: USTEKINUMAB
     Indication: Product used for unknown indication
     Route: 058
  2. STELARA [Suspect]
     Active Substance: USTEKINUMAB
  3. PREDNISOLONE [Concomitant]
     Active Substance: PREDNISOLONE

REACTIONS (3)
  - Pyoderma gangrenosum [Unknown]
  - Skin injury [Unknown]
  - Oedema peripheral [Unknown]
